FAERS Safety Report 10383622 (Version 1)
Quarter: 2014Q3

REPORT INFORMATION
  Report Type: Spontaneous
  Country: US (occurrence: US)
  Receive Date: 20140814
  Receipt Date: 20140814
  Transmission Date: 20150326
  Serious: Yes (Other)
  Sender: FDA-Public Use
  Company Number: US-BRISTOL-MYERS SQUIBB COMPANY-21292883

PATIENT
  Age: 75 Year
  Sex: Female

DRUGS (14)
  1. XARELTO [Concomitant]
     Active Substance: RIVAROXABAN
  2. MULTAQ [Concomitant]
     Active Substance: DRONEDARONE
  3. ABILIFY [Suspect]
     Active Substance: ARIPIPRAZOLE
  4. LEVOTHYROXINE [Concomitant]
     Active Substance: LEVOTHYROXINE
  5. NEXIUM [Concomitant]
     Active Substance: ESOMEPRAZOLE MAGNESIUM
  6. SPIRIVA [Concomitant]
     Active Substance: TIOTROPIUM BROMIDE MONOHYDRATE
  7. URSODIOL. [Concomitant]
     Active Substance: URSODIOL
  8. DIGOXIN. [Concomitant]
     Active Substance: DIGOXIN
  9. HYZAAR [Concomitant]
     Active Substance: HYDROCHLOROTHIAZIDE\LOSARTAN POTASSIUM
  10. ESTRADIOL. [Concomitant]
     Active Substance: ESTRADIOL
  11. TRAMADOL [Concomitant]
     Active Substance: TRAMADOL
  12. VITAMIN C [Concomitant]
     Active Substance: ASCORBIC ACID
  13. DULERA [Concomitant]
     Active Substance: FORMOTEROL FUMARATE DIHYDRATE\MOMETASONE FUROATE
  14. VITAMIN D [Concomitant]
     Active Substance: CHOLECALCIFEROL

REACTIONS (1)
  - Mania [Recovering/Resolving]
